FAERS Safety Report 5720207-0 (Version None)
Quarter: 2008Q2

REPORT INFORMATION
  Report Type: 
  Country: None (occurrence: None)
  Receive Date: 20080428
  Receipt Date: 20071009
  Transmission Date: 20081010
  Serious: No
  Sender: FDA-Public Use
  Company Number: US-AMGEN-US247165

PATIENT
  Sex: Male

DRUGS (5)
  1. SENSIPAR [Suspect]
     Indication: HYPERPARATHYROIDISM SECONDARY
     Route: 065
     Dates: start: 20070901
  2. UNSPECIFIED BETA BLOCKER [Concomitant]
     Route: 065
  3. INSULIN [Concomitant]
     Route: 065
  4. UNSPECIFIED GASTROINTESTINAL AGENT [Concomitant]
     Route: 065
  5. WARFARIN SODIUM [Concomitant]
     Route: 065

REACTIONS (1)
  - VISION BLURRED [None]
